FAERS Safety Report 13234556 (Version 1)
Quarter: 2017Q1

REPORT INFORMATION
  Report Type: Spontaneous
  Country: US (occurrence: US)
  Receive Date: 20170215
  Receipt Date: 20170215
  Transmission Date: 20170428
  Serious: No
  Sender: FDA-Public Use
  Company Number: US-PFIZER INC-2017059220

PATIENT
  Age: 48 Year
  Sex: Male
  Weight: 105.2 kg

DRUGS (1)
  1. VIAGRA [Suspect]
     Active Substance: SILDENAFIL CITRATE
     Dosage: 100 MG, UNK

REACTIONS (4)
  - Cyanopsia [Recovered/Resolved]
  - Nasal congestion [Unknown]
  - Visual brightness [Recovered/Resolved]
  - Flushing [Unknown]
